FAERS Safety Report 25622303 (Version 1)
Quarter: 2025Q3

REPORT INFORMATION
  Report Type: Spontaneous
  Country: US (occurrence: None)
  Receive Date: 20250730
  Receipt Date: 20250730
  Transmission Date: 20251020
  Serious: No
  Sender: MERCK SHARP & DOHME LLC
  Company Number: US-009507513-2313454

PATIENT
  Age: 15 Year
  Sex: Female

DRUGS (3)
  1. TEDIZOLID [Suspect]
     Active Substance: TEDIZOLID
     Indication: Enterococcal infection
     Route: 048
  2. DAPTOMYCIN [Suspect]
     Active Substance: DAPTOMYCIN
     Indication: Enterococcal infection
  3. LINEZOLID [Concomitant]
     Active Substance: LINEZOLID
     Indication: Enterococcal infection

REACTIONS (1)
  - Product use in unapproved indication [Unknown]
